FAERS Safety Report 12205501 (Version 1)
Quarter: 2016Q1

REPORT INFORMATION
  Report Type: Spontaneous
  Country: EG (occurrence: EG)
  Receive Date: 20160323
  Receipt Date: 20160323
  Transmission Date: 20160526
  Serious: Yes (Hospitalization)
  Sender: FDA-Public Use
  Company Number: PHHY2016EG037371

PATIENT
  Age: 12 Month

DRUGS (1)
  1. CEFTRIAXONE SODIUM+LIDOCAINE HYDROCHLORIDE SANDOZ [Suspect]
     Active Substance: CEFTRIAXONE
     Indication: BRONCHITIS
     Dosage: 1 ML, UNK
     Route: 030

REACTIONS (1)
  - Anaphylactic shock [Unknown]
